FAERS Safety Report 19087865 (Version 1)
Quarter: 2021Q2

REPORT INFORMATION
  Report Type: Spontaneous
  Country: US (occurrence: US)
  Receive Date: 20210402
  Receipt Date: 20210402
  Transmission Date: 20210717
  Serious: No
  Sender: FDA-Public Use
  Company Number: US-BAUSCH-BL-2021-007642

PATIENT
  Age: 61 Year
  Sex: Female

DRUGS (2)
  1. LUMIFY [Suspect]
     Active Substance: BRIMONIDINE TARTRATE
     Dosage: AS NEEDED, ONE DROP IN EACH EYE, TRIED THE PRODUCT AGAIN APPROXIMATELY 5 TO 6 WEEKS LATER
     Route: 047
  2. LUMIFY [Suspect]
     Active Substance: BRIMONIDINE TARTRATE
     Indication: OCULAR HYPERAEMIA
     Dosage: AS NEEDED, ONE DROP IN EACH EYE
     Route: 047

REACTIONS (1)
  - Eye pruritus [Unknown]
